FAERS Safety Report 24677523 (Version 2)
Quarter: 2025Q3

REPORT INFORMATION
  Report Type: Spontaneous
  Country: EU (occurrence: EU)
  Receive Date: 20241129
  Receipt Date: 20250809
  Transmission Date: 20251021
  Serious: Yes (Other)
  Sender: ALEXION PHARMACEUTICALS
  Company Number: EU-AstraZeneca-CH-00755764A

PATIENT
  Sex: Female

DRUGS (3)
  1. DURVALUMAB [Suspect]
     Active Substance: DURVALUMAB
     Indication: Prophylaxis
     Dates: start: 20221215
  2. CISPLATIN [Suspect]
     Active Substance: CISPLATIN
     Indication: Prophylaxis
  3. GEMCITABINE [Concomitant]
     Active Substance: GEMCITABINE
     Indication: Prophylaxis

REACTIONS (3)
  - Polyneuropathy [Recovered/Resolved]
  - Quality of life decreased [Recovered/Resolved]
  - Dizziness [Recovered/Resolved]

NARRATIVE: CASE EVENT DATE: 20230116
